FAERS Safety Report 5596787-5 (Version None)
Quarter: 2008Q1

REPORT INFORMATION
  Report Type: 
  Country: None (occurrence: None)
  Receive Date: 20080118
  Receipt Date: 20080107
  Transmission Date: 20080703
  Serious: Yes (Other)
  Sender: FDA-Public Use
  Company Number: US-PFIZER INC-2008003308

PATIENT
  Sex: Female
  Weight: 122.72 kg

DRUGS (14)
  1. CHANTIX [Suspect]
     Indication: SMOKING CESSATION THERAPY
     Dates: start: 20070901, end: 20071101
  2. LAMICTAL [Concomitant]
  3. LEXAPRO [Concomitant]
  4. LASIX [Concomitant]
  5. LISINOPRIL [Concomitant]
  6. PROTONIX [Concomitant]
  7. POTASSIUM CHLORIDE [Concomitant]
  8. KLOR-CON [Concomitant]
  9. FUROSEMIDE [Concomitant]
  10. ALLEGRA [Concomitant]
  11. AMBIEN [Concomitant]
  12. LORTAB [Concomitant]
     Indication: PAIN
  13. CALCIUM GLUCONATE [Concomitant]
  14. VITAMIN CAP [Concomitant]

REACTIONS (2)
  - CONSTIPATION [None]
  - GASTRITIS [None]
